FAERS Safety Report 4811468-0 (Version None)
Quarter: 2005Q4

REPORT INFORMATION
  Report Type: 
  Country: None (occurrence: None)
  Receive Date: 20051027
  Receipt Date: 20051019
  Transmission Date: 20060501
  Serious: Yes (Hospitalization)
  Sender: FDA-Public Use
  Company Number: JP-ROCHE-422165

PATIENT
  Age: 63 Year
  Sex: Male

DRUGS (1)
  1. PEGASYS [Suspect]
     Route: 058
     Dates: start: 20050815, end: 20050815

REACTIONS (2)
  - RENAL FAILURE ACUTE [None]
  - STEVENS-JOHNSON SYNDROME [None]
